FAERS Safety Report 19001354 (Version 1)
Quarter: 2021Q1

REPORT INFORMATION
  Report Type: Spontaneous
  Country: US (occurrence: US)
  Receive Date: 20210311
  Receipt Date: 20210311
  Transmission Date: 20210420
  Serious: Yes (Hospitalization, Other)
  Sender: FDA-Public Use
  Company Number: US-UNICHEM PHARMACEUTICALS (USA) INC-UCM202103-000217

PATIENT
  Age: 54 Year
  Sex: Female

DRUGS (1)
  1. BACLOFEN. [Suspect]
     Active Substance: BACLOFEN
     Indication: OVERDOSE
     Dosage: UNKNOWN

REACTIONS (3)
  - Sciatic nerve neuropathy [Unknown]
  - Overdose [Unknown]
  - Compartment syndrome [Unknown]
